FAERS Safety Report 8330114-5 (Version None)
Quarter: 2012Q2

REPORT INFORMATION
  Report Type: 
  Country: None (occurrence: None)
  Receive Date: 20120502
  Receipt Date: 20100517
  Transmission Date: 20120825
  Serious: No
  Sender: FDA-Public Use
  Company Number: US-TEVA-2010000205

PATIENT
  Sex: Female
  Weight: 81.72 kg

DRUGS (13)
  1. NUVIGIL [Suspect]
     Indication: SEDATION
     Dosage: 250 MILLIGRAM;
     Route: 048
     Dates: start: 20091101
  2. NUVIGIL [Suspect]
     Indication: FATIGUE
     Dosage: 500 MILLIGRAM;
     Route: 048
     Dates: end: 20100401
  3. NUVIGIL [Suspect]
     Dosage: 750 MILLIGRAM;
     Route: 048
     Dates: start: 20100401
  4. NUVIGIL [Suspect]
     Dosage: 500 MILLIGRAM;
  5. WELLBUTRIN [Concomitant]
     Indication: DEPRESSION
     Dosage: 300 MILLIGRAM;
     Dates: start: 20000101
  6. ZOLOFT [Concomitant]
     Indication: OBSESSIVE-COMPULSIVE DISORDER
     Dosage: 125 MILLIGRAM;
     Dates: start: 20000101
  7. ABILIFY [Concomitant]
     Indication: DEPRESSION
     Dosage: 2.5 MILLIGRAM;
     Dates: start: 20090801
  8. ZOLOFT [Concomitant]
     Indication: DEPRESSION
     Dosage: 100 MILLIGRAM;
     Dates: start: 20090101
  9. KLONOPIN [Concomitant]
     Indication: ANXIETY
     Dosage: 1 MILLIGRAM;
     Dates: start: 20090801
  10. AMBIEN [Concomitant]
     Dates: start: 20090101
  11. LEVOTHYROXINE SODIUM [Concomitant]
     Indication: HYPOTHYROIDISM
     Dosage: .5 MILLIGRAM;
     Dates: start: 19950101
  12. ABILIFY [Concomitant]
     Dosage: 5 MILLIGRAM;
     Dates: start: 20090801
  13. STRATTERA [Concomitant]
     Indication: ATTENTION DEFICIT/HYPERACTIVITY DISORDER
     Dates: start: 20020101

REACTIONS (9)
  - INTENTIONAL DRUG MISUSE [None]
  - DEPRESSION [None]
  - DISTURBANCE IN ATTENTION [None]
  - DRUG PRESCRIBING ERROR [None]
  - INTENTIONAL OVERDOSE [None]
  - MANIA [None]
  - DRUG DEPENDENCE [None]
  - FATIGUE [None]
  - MIGRAINE [None]
